FAERS Safety Report 25995626 (Version 1)
Quarter: 2025Q4

REPORT INFORMATION
  Report Type: Spontaneous
  Country: EU (occurrence: EU)
  Receive Date: 20251104
  Receipt Date: 20251104
  Transmission Date: 20260118
  Serious: Yes (Other)
  Sender: AUROBINDO
  Company Number: EU-AFSSAPS-MP2025000969

PATIENT
  Sex: Male
  Weight: 2.54 kg

DRUGS (6)
  1. QUETIAPINE [Suspect]
     Active Substance: QUETIAPINE
     Indication: Eating disorder
     Dosage: 300 TO 400 MG/DAY
     Route: 065
     Dates: start: 20240628, end: 20250222
  2. SERTRALINE [Suspect]
     Active Substance: SERTRALINE HYDROCHLORIDE
     Indication: Eating disorder
     Dosage: 150 TO 250 MG/DAY
     Route: 065
     Dates: start: 20240628, end: 20250222
  3. ATARAX [Suspect]
     Active Substance: HYDROXYZINE HYDROCHLORIDE
     Indication: Sleep disorder
     Dosage: 25 MILLIGRAM, ONCE A DAY
     Route: 065
     Dates: start: 2025, end: 20250222
  4. MELATONIN [Concomitant]
     Active Substance: MELATONIN
     Indication: Sleep disorder
     Dosage: 8 MILLIGRAM, ONCE A DAY
     Route: 065
     Dates: end: 202412
  5. URSODIOL [Concomitant]
     Active Substance: URSODIOL
     Indication: Cholestasis of pregnancy
     Dosage: 500 MILLIGRAM, MORNING AND EVENING
     Route: 065
     Dates: start: 2025, end: 20250222
  6. CALCIUM PHOSPHATE, DIBASIC, ANHYDROUS\MAGNESIUM GLYCEROPHOSPHATE\PHOSP [Concomitant]
     Active Substance: CALCIUM PHOSPHATE, DIBASIC, ANHYDROUS\MAGNESIUM GLYCEROPHOSPHATE\PHOSPHORIC ACID\SODIUM PHOSPHATE, D
     Indication: Cholestasis of pregnancy
     Dosage: 30 DROP, ONCE A DAY
     Route: 065
     Dates: start: 20240628, end: 20250222

REACTIONS (6)
  - Pyelocaliectasis [Not Recovered/Not Resolved]
  - Neonatal hypoxia [Recovered/Resolved]
  - Hypertonia neonatal [Recovered/Resolved]
  - Scaphocephaly [Not Recovered/Not Resolved]
  - Tremor neonatal [Recovered/Resolved]
  - Foetal exposure during pregnancy [Recovered/Resolved]

NARRATIVE: CASE EVENT DATE: 20250222
